FAERS Safety Report 12630512 (Version 1)
Quarter: 2016Q3

REPORT INFORMATION
  Report Type: Spontaneous
  Country: US (occurrence: US)
  Receive Date: 20160808
  Receipt Date: 20160808
  Transmission Date: 20161109
  Serious: No
  Sender: FDA-Public Use
  Company Number: US-PFIZER INC-2016344575

PATIENT
  Sex: Female

DRUGS (2)
  1. MELATONIN [Suspect]
     Active Substance: MELATONIN
     Dosage: UNK
  2. ADVIL MIGRAINE [Suspect]
     Active Substance: IBUPROFEN
     Indication: HEADACHE
     Dosage: 3 DF, 1X/DAY (TOOK 3 AT THE SAME TIME FOR THE NIGHT)

REACTIONS (5)
  - Gait disturbance [Unknown]
  - Intentional product use issue [Unknown]
  - Dizziness postural [Unknown]
  - Dizziness [Unknown]
  - Vision blurred [Unknown]
